FAERS Safety Report 25742481 (Version 5)
Quarter: 2025Q4

REPORT INFORMATION
  Report Type: Spontaneous
  Country: AR (occurrence: AR)
  Receive Date: 20250829
  Receipt Date: 20251015
  Transmission Date: 20260117
  Serious: Yes (Other)
  Sender: PFIZER
  Company Number: AR-PFIZER INC-202500172045

PATIENT
  Age: 17 Year
  Sex: Female

DRUGS (1)
  1. GENOTROPIN [Suspect]
     Active Substance: SOMATROPIN
     Indication: Turner^s syndrome
     Dosage: UNK

REACTIONS (3)
  - Drug dose omission by device [Unknown]
  - Device defective [Unknown]
  - Device information output issue [Unknown]
